FAERS Safety Report 17434944 (Version 1)
Quarter: 2020Q1

REPORT INFORMATION
  Report Type: Spontaneous
  Country: US (occurrence: US)
  Receive Date: 20200204
  Receipt Date: 20200204
  Transmission Date: 20200409
  Serious: Yes (Death)
  Sender: FDA-Public Use
  Company Number: None

PATIENT
  Age: 40 Year
  Sex: Male

DRUGS (2)
  1. SOFOS/VELPAT 400MG-100MG TAB [Suspect]
     Active Substance: SOFOSBUVIR\VELPATASVIR
     Indication: HEPATITIS C
     Dosage: 400MG-100MG TAB QD PO?
     Route: 048
     Dates: start: 20191120, end: 201912
  2. SOFOS/VELPAT 400MG-100MG TAB [Suspect]
     Active Substance: SOFOSBUVIR\VELPATASVIR
     Indication: HEPATITIS VIRAL
     Dosage: 400MG-100MG TAB QD PO?
     Route: 048
     Dates: start: 20191120, end: 201912

REACTIONS (1)
  - Death [None]
